FAERS Safety Report 15539030 (Version 2)
Quarter: 2018Q4

REPORT INFORMATION
  Report Type: Spontaneous
  Country: FR (occurrence: FR)
  Receive Date: 20181022
  Receipt Date: 20181127
  Transmission Date: 20190205
  Serious: Yes (Other)
  Sender: FDA-Public Use
  Company Number: FR-PFIZER INC-2018430595

PATIENT
  Age: 24 Year
  Sex: Male

DRUGS (2)
  1. RULID [Suspect]
     Active Substance: ROXITHROMYCIN
     Indication: UPPER RESPIRATORY TRACT INFECTION
     Dosage: 300 MG, QD
     Route: 065
     Dates: start: 20180920, end: 20180929
  2. INIPOMP [Suspect]
     Active Substance: PANTOPRAZOLE SODIUM
     Indication: REFLUX GASTRITIS
     Dosage: 20 MG, QD
     Route: 065
     Dates: start: 20180925, end: 20180929

REACTIONS (4)
  - Amaurosis [Recovered/Resolved]
  - Ischaemia [Recovered/Resolved]
  - Arterial spasm [Recovered/Resolved]
  - Duodenogastric reflux [Unknown]

NARRATIVE: CASE EVENT DATE: 201809
